FAERS Safety Report 9781777 (Version 2)
Quarter: 2013Q4

REPORT INFORMATION
  Report Type: Spontaneous
  Country: JP (occurrence: JP)
  Receive Date: 20131225
  Receipt Date: 20131227
  Transmission Date: 20140711
  Serious: Yes (Other)
  Sender: FDA-Public Use
  Company Number: JP-ROCHE-1325204

PATIENT
  Age: 41 Year
  Sex: Male
  Weight: 70 kg

DRUGS (4)
  1. XOLAIR [Suspect]
     Indication: ASTHMA
     Route: 058
     Dates: start: 20131214, end: 20131214
  2. ADOAIR [Concomitant]
     Route: 065
     Dates: start: 20121003
  3. SINGULAIR [Concomitant]
     Route: 065
     Dates: start: 20121003
  4. ALLOPURINOL [Concomitant]
     Route: 065
     Dates: start: 20121003

REACTIONS (3)
  - Blood pressure decreased [Recovered/Resolved]
  - Malaise [Unknown]
  - Dizziness [Unknown]
